FAERS Safety Report 5216545-0 (Version None)
Quarter: 2007Q1

REPORT INFORMATION
  Report Type: 
  Country: None (occurrence: None)
  Receive Date: 20061130
  Receipt Date: 20060815
  Transmission Date: 20070707
  Serious: Yes (Hospitalization)
  Sender: FDA-Public Use
  Company Number: US200608003514

PATIENT
  Age: 58 Year
  Sex: Female
  Weight: 65.8 kg

DRUGS (1)
  1. ZYPREXA [Suspect]
     Dates: start: 19970101, end: 20020101

REACTIONS (3)
  - CARDIAC FAILURE CONGESTIVE [None]
  - DIABETES MELLITUS [None]
  - HYPERGLYCAEMIA [None]
